FAERS Safety Report 21854694 (Version 2)
Quarter: 2023Q1

REPORT INFORMATION
  Report Type: Spontaneous
  Country: FR (occurrence: FR)
  Receive Date: 20230112
  Receipt Date: 20230124
  Transmission Date: 20230418
  Serious: Yes (Hospitalization)
  Sender: FDA-Public Use
  Company Number: None

PATIENT
  Age: 37 Year
  Sex: Female

DRUGS (6)
  1. TERBINAFINE [Suspect]
     Active Substance: TERBINAFINE
     Indication: Fungal infection
     Dosage: UNIT DOSE : 250 MG, FREQUENCY TIME : 1 DAY, DURATION : 7 DAYS
     Route: 065
     Dates: start: 20221017, end: 20221024
  2. BENZOYL PEROXIDE [Suspect]
     Active Substance: BENZOYL PEROXIDE
     Indication: Product used for unknown indication
     Dosage: UNIT DOSE :  1 DOSAGE FORM, FREQUENCY TIME : 1 DAY
     Dates: start: 20221017
  3. ZOLMITRIPTAN [Concomitant]
     Active Substance: ZOLMITRIPTAN
     Indication: Product used for unknown indication
     Dosage: THERAPY START DATE : ASKU
  4. DESOGESTREL [Concomitant]
     Active Substance: DESOGESTREL
     Indication: Product used for unknown indication
     Dosage: STRENGTH : 75 MICROGRAMS, UNIT DOSE :  1 DOSAGE FORM, FREQUENCY TIME : 1 DAY, THERAPY START DATE : A
  5. ECONAZOLE [Concomitant]
     Active Substance: ECONAZOLE
     Indication: Fungal infection
     Dosage: UNIT DOSE: 1 DF , FREQUENCY TIME : 1 DAY
     Dates: start: 20221017
  6. PREDNISOLONE [Concomitant]
     Active Substance: PREDNISOLONE
     Indication: COVID-19
     Dates: start: 20221017, end: 20221020

REACTIONS (1)
  - Acute generalised exanthematous pustulosis [Recovered/Resolved]

NARRATIVE: CASE EVENT DATE: 20221024
